FAERS Safety Report 6523984-4 (Version None)
Quarter: 2009Q4

REPORT INFORMATION
  Report Type: 
  Country: None (occurrence: None)
  Receive Date: 20091231
  Receipt Date: 20091223
  Transmission Date: 20100525
  Serious: Yes (Hospitalization)
  Sender: FDA-Public Use
  Company Number: US-ASTRAZENECA-2009SE33312

PATIENT
  Age: 41 Year
  Sex: Male
  Weight: 120.2 kg

DRUGS (4)
  1. PULMICORT FLEXHALER [Suspect]
     Indication: ASTHMA
     Route: 055
     Dates: start: 20091001
  2. ALBUTEROL [Concomitant]
  3. ZYRTEC [Concomitant]
  4. NABUMETONE [Concomitant]

REACTIONS (1)
  - ASTHMA [None]
